FAERS Safety Report 5338312-X (Version None)
Quarter: 2007Q2

REPORT INFORMATION
  Report Type: 
  Country: None (occurrence: None)
  Receive Date: 20070405
  Receipt Date: 20061110
  Transmission Date: 20071010
  Serious: No
  Sender: FDA-Public Use
  Company Number: US200611002176

PATIENT
  Age: 48 Year
  Sex: Female

DRUGS (8)
  1. CYMBALTA [Suspect]
     Indication: DEPRESSION
     Dosage: 60 MG
     Dates: start: 20060101
  2. ALLEGRA [Concomitant]
  3. NASONEX [Concomitant]
  4. SINGULAIR [Concomitant]
  5. VALTREX /UNK/ (VALACICLOVIR HYDROCHLORIDE) [Concomitant]
  6. MINOCYCLINE HCL [Concomitant]
  7. BUTALBITAL (BUTALBITAL) [Concomitant]
  8. ACIDOPHILUS (LACTOBACILLUS ACIDOPHILUS) [Concomitant]

REACTIONS (1)
  - AUTOIMMUNE THYROIDITIS [None]
